FAERS Safety Report 18960632 (Version 1)
Quarter: 2021Q1

REPORT INFORMATION
  Report Type: Spontaneous
  Country: IT (occurrence: IT)
  Receive Date: 20210303
  Receipt Date: 20210303
  Transmission Date: 20210420
  Serious: Yes (Other)
  Sender: FDA-Public Use
  Company Number: IT-SUN PHARMACEUTICAL INDUSTRIES LTD-2021RR-283493

PATIENT
  Age: 60 Year
  Sex: Female

DRUGS (4)
  1. CARBOPLATIN. [Suspect]
     Active Substance: CARBOPLATIN
     Indication: METASTASES TO BREAST
  2. ETOPOSIDE. [Suspect]
     Active Substance: ETOPOSIDE
     Indication: CARCINOID TUMOUR PULMONARY
     Dosage: SIX CYCLES, UNK
     Route: 065
  3. CARBOPLATIN. [Suspect]
     Active Substance: CARBOPLATIN
     Indication: CARCINOID TUMOUR PULMONARY
     Dosage: SIX CYCLES, UNK
     Route: 065
  4. ETOPOSIDE. [Suspect]
     Active Substance: ETOPOSIDE
     Indication: METASTASES TO BREAST

REACTIONS (1)
  - Disease progression [Unknown]

NARRATIVE: CASE EVENT DATE: 200611
